FAERS Safety Report 7961316-5 (Version None)
Quarter: 2011Q4

REPORT INFORMATION
  Report Type: 
  Country: None (occurrence: None)
  Receive Date: 20111202
  Receipt Date: 20111125
  Transmission Date: 20120403
  Serious: Yes (Death)
  Sender: FDA-Public Use
  Company Number: IPC201111-003234

PATIENT
  Age: 39 Year
  Sex: Male

DRUGS (1)
  1. METFORMIN HYDROCHLORIDE [Suspect]
     Dosage: 90 GRAMS ORAL
     Route: 048

REACTIONS (5)
  - SHOCK [None]
  - OVERDOSE [None]
  - HAEMODYNAMIC INSTABILITY [None]
  - COMPLETED SUICIDE [None]
  - LACTIC ACIDOSIS [None]
